FAERS Safety Report 9857891 (Version 1)
Quarter: 2014Q1

REPORT INFORMATION
  Report Type: Report from Study
  Country: US (occurrence: US)
  Receive Date: 20140131
  Receipt Date: 20140131
  Transmission Date: 20141002
  Serious: Yes (Other)
  Sender: FDA-Public Use
  Company Number: US-ROCHE-1342275

PATIENT
  Sex: Female
  Weight: 31.9 kg

DRUGS (4)
  1. NUTROPIN AQ [Suspect]
     Indication: GROWTH HORMONE DEFICIENCY
     Route: 058
  2. NUTROPIN AQ [Suspect]
     Route: 058
     Dates: start: 20140128
  3. FOCALIN [Concomitant]
  4. FISH OIL [Concomitant]
     Route: 048

REACTIONS (4)
  - Growth retardation [Unknown]
  - Weight decreased [Unknown]
  - Neck pain [Unknown]
  - Decreased appetite [Unknown]
